FAERS Safety Report 4867919-9 (Version None)
Quarter: 2005Q4

REPORT INFORMATION
  Report Type: 
  Country: None (occurrence: None)
  Receive Date: 20051227
  Receipt Date: 20051221
  Transmission Date: 20060501
  Serious: Yes (Death, Life-Threatening, Hospitalization)
  Sender: FDA-Public Use
  Company Number: E044-318-3719

PATIENT
  Age: 77 Year
  Sex: Male
  Weight: 64 kg

DRUGS (11)
  1. DONEPEZIL HCL [Suspect]
     Indication: DEMENTIA
     Dosage: 5 MG, 1 IN 1 D, ORAL
     Route: 048
     Dates: start: 20041124, end: 20050211
  2. DONEPEZIL HCL [Suspect]
     Indication: PARKINSON'S DISEASE
     Dosage: 5 MG, 1 IN 1 D, ORAL
     Route: 048
     Dates: start: 20041124, end: 20050211
  3. DONEPEZIL HCL [Suspect]
     Indication: DEMENTIA
     Dosage: DOUBLEBLIND, 1 IN 1 D, ORAL
     Route: 048
     Dates: start: 20040519, end: 20041123
  4. DONEPEZIL HCL [Suspect]
     Indication: PARKINSON'S DISEASE
     Dosage: DOUBLEBLIND, 1 IN 1 D, ORAL
     Route: 048
     Dates: start: 20040519, end: 20041123
  5. SELEGELINE HYDROCHLORIDE [Concomitant]
  6. DOMPERIDONE (DOMPERIDONE) [Concomitant]
  7. PANTOPRAZOLE SODIUM [Concomitant]
  8. PERINDOPRIL ERBUMINE (PERINDOPRIL ERBUMINE) [Concomitant]
  9. COLCHICUM JTL LIQ [Concomitant]
  10. LEVOTHYROXINE SODIUM [Concomitant]
  11. LEVODOPA CR (LEVODOPA) [Concomitant]

REACTIONS (9)
  - GASTRIC CANCER [None]
  - GASTRIC STENOSIS [None]
  - GASTRIC ULCER [None]
  - GASTROOESOPHAGEAL REFLUX DISEASE [None]
  - HAEMATEMESIS [None]
  - INTESTINAL OBSTRUCTION [None]
  - METASTASES TO LIVER [None]
  - NAUSEA [None]
  - VOMITING [None]
